APPROVED DRUG PRODUCT: FLEXICORT
Active Ingredient: HYDROCORTISONE
Strength: 2.5%
Dosage Form/Route: CREAM;TOPICAL
Application: A087136 | Product #001
Applicant: WESTWOOD SQUIBB PHARMACEUTICALS INC
Approved: Apr 8, 1982 | RLD: No | RS: No | Type: DISCN